FAERS Safety Report 9995032 (Version 1)
Quarter: 2014Q1

REPORT INFORMATION
  Report Type: Spontaneous
  Country: US (occurrence: None)
  Receive Date: 20140307
  Receipt Date: 20140307
  Transmission Date: 20141002
  Serious: No
  Sender: FDA-Public Use
  Company Number: None

PATIENT
  Age: 58 Year
  Sex: Female
  Weight: 56.7 kg

DRUGS (8)
  1. ATELVIA [Suspect]
     Indication: PAIN
     Dosage: 500 ML OR 1 GM, 2 PUFFS OR 1 TEASPOON, ETC.35 MG, ONCE WEEKLY, MOUTH
     Dates: start: 20140218, end: 20140224
  2. SERTRALINE [Concomitant]
  3. TEMAZEPAM [Concomitant]
  4. VITAMIN C [Concomitant]
  5. FISH OIL CAPSULES [Concomitant]
  6. PROBIOTICS [Concomitant]
  7. MULTI-VITAMIN [Concomitant]
  8. CITRACAL (CALCIUM AND VIT. D) [Concomitant]

REACTIONS (6)
  - Headache [None]
  - Pain [None]
  - Arthralgia [None]
  - Bone pain [None]
  - Musculoskeletal chest pain [None]
  - Arthralgia [None]
